FAERS Safety Report 4483062-5 (Version None)
Quarter: 2004Q4

REPORT INFORMATION
  Report Type: 
  Country: None (occurrence: None)
  Receive Date: 20040921
  Receipt Date: 20040512
  Transmission Date: 20050328
  Serious: Yes (Hospitalization)
  Sender: FDA-Public Use
  Company Number: 163-20785-04050287

PATIENT
  Age: 65 Year
  Sex: Female

DRUGS (1)
  1. THALOMID [Suspect]
     Indication: LYMPHOMA
     Dosage: 200 MG, DAILY, ORAL
     Route: 048
     Dates: start: 20031231

REACTIONS (1)
  - PYREXIA [None]
